FAERS Safety Report 8618504 (Version 3)
Quarter: 2014Q1

REPORT INFORMATION
  Report Type: Spontaneous
  Country: US (occurrence: US)
  Receive Date: 20120618
  Receipt Date: 20140113
  Transmission Date: 20141002
  Serious: Yes (Hospitalization, Disabling, Other)
  Sender: FDA-Public Use
  Company Number: US-ASTRAZENECA-2012SE36030

PATIENT
  Age: 51 Year
  Sex: Female

DRUGS (12)
  1. NEXIUM [Suspect]
     Indication: GASTROOESOPHAGEAL REFLUX DISEASE
     Route: 048
  2. NEXIUM [Suspect]
     Indication: GASTROOESOPHAGEAL REFLUX DISEASE
     Route: 048
     Dates: start: 20031219
  3. OMEPRAZOLE/PRILOSEC [Suspect]
     Indication: GASTROOESOPHAGEAL REFLUX DISEASE
     Route: 048
  4. OMEPRAZOLE/PRILOSEC [Suspect]
     Indication: GASTROOESOPHAGEAL REFLUX DISEASE
     Dosage: OTC 20 MG TWICE DAILY
     Route: 048
     Dates: start: 20040525
  5. OMEPRAZOLE/PRILOSEC [Suspect]
     Indication: GASTROOESOPHAGEAL REFLUX DISEASE
     Route: 048
     Dates: start: 20131115
  6. PREVACID [Concomitant]
     Indication: GASTROOESOPHAGEAL REFLUX DISEASE
  7. ESTRADIOL [Concomitant]
     Dates: start: 200210
  8. TIZANADINE [Concomitant]
     Indication: MUSCLE DISORDER
  9. ATENELOL [Concomitant]
     Indication: BLOOD PRESSURE ABNORMAL
  10. LISINOPRIL [Concomitant]
     Indication: BLOOD PRESSURE ABNORMAL
  11. AMLODIPINE [Concomitant]
     Indication: BLOOD PRESSURE ABNORMAL
  12. TRAZODONE [Concomitant]
     Route: 048
     Dates: start: 20040115

REACTIONS (10)
  - Hip fracture [Unknown]
  - Joint injury [Unknown]
  - Pain [Unknown]
  - Fall [Unknown]
  - Transient ischaemic attack [Unknown]
  - Femoral neck fracture [Unknown]
  - Cervical vertebral fracture [Unknown]
  - Osteoporosis [Unknown]
  - Multiple fractures [Unknown]
  - Depression [Unknown]
